FAERS Safety Report 6196846-2 (Version None)
Quarter: 2009Q2

REPORT INFORMATION
  Report Type: 
  Country: None (occurrence: None)
  Receive Date: 20090520
  Receipt Date: 20090512
  Transmission Date: 20091009
  Serious: Yes (Death)
  Sender: FDA-Public Use
  Company Number: US-PURDUE-USA_2009_0037533

PATIENT

DRUGS (11)
  1. OXYCONTIN [Suspect]
     Indication: BACK PAIN
     Dosage: UNK MG, UNK
     Route: 048
  2. MORPHINE SULFATE [Concomitant]
     Dosage: 30 UNK, UNK
  3. MORPHINE SULFATE [Concomitant]
     Dosage: 15 UNK, UNK
  4. LORAZEPAM [Concomitant]
  5. TEMAZEPAM [Concomitant]
     Dosage: 15 MG, UNK
  6. FLOMAX                             /01280302/ [Concomitant]
     Dosage: 0.4 MG, UNK
  7. OMEPRAZOLE [Concomitant]
     Dosage: 20 MG, UNK
  8. LUNESTA [Concomitant]
     Dosage: 3 MG, UNK
  9. BACLOFEN [Concomitant]
  10. AMITIZA [Concomitant]
     Dosage: 24 MCG, UNK
  11. ALPRAZOLAM [Concomitant]
     Dosage: 0.5 MG, UNK

REACTIONS (2)
  - COMPLETED SUICIDE [None]
  - GUN SHOT WOUND [None]
